FAERS Safety Report 12322003 (Version 3)
Quarter: 2016Q2

REPORT INFORMATION
  Report Type: Spontaneous
  Country: US (occurrence: US)
  Receive Date: 20160502
  Receipt Date: 20160513
  Transmission Date: 20160815
  Serious: No
  Sender: FDA-Public Use
  Company Number: US-GLAXOSMITHKLINE-US2016042535

PATIENT
  Sex: Female

DRUGS (1)
  1. SUMATRIPTAN TABLET [Suspect]
     Active Substance: SUMATRIPTAN
     Indication: MIGRAINE

REACTIONS (2)
  - Intentional product use issue [Unknown]
  - Drug ineffective [Unknown]
